FAERS Safety Report 9694156 (Version 2)
Quarter: 2014Q1

REPORT INFORMATION
  Report Type: Spontaneous
  Country: US (occurrence: US)
  Receive Date: 20131118
  Receipt Date: 20140124
  Transmission Date: 20141002
  Serious: No
  Sender: FDA-Public Use
  Company Number: US-009507513-1310USA009947

PATIENT
  Sex: Female

DRUGS (1)
  1. NEXPLANON [Suspect]
     Indication: CONTRACEPTION
     Dosage: 68MG ETONOGESTREL
     Route: 059
     Dates: start: 20130423, end: 20131001

REACTIONS (2)
  - Device dislocation [Recovered/Resolved]
  - Pain in extremity [Recovered/Resolved]
